FAERS Safety Report 13422851 (Version 1)
Quarter: 2017Q2

REPORT INFORMATION
  Report Type: Spontaneous
  Country: US (occurrence: US)
  Receive Date: 20170410
  Receipt Date: 20170410
  Transmission Date: 20170830
  Serious: No
  Sender: FDA-Public Use
  Company Number: US-BAYER-2017-066096

PATIENT
  Sex: Male
  Weight: 11.34 kg

DRUGS (1)
  1. MIRALAX [Suspect]
     Active Substance: POLYETHYLENE GLYCOL 3350
     Indication: GASTROINTESTINAL DISORDER
     Dosage: 1 TEASPOON 3-4 TIMES A DAY
     Route: 048

REACTIONS (3)
  - Product use issue [Unknown]
  - Drug administered to patient of inappropriate age [None]
  - Product use issue [None]
